FAERS Safety Report 26215173 (Version 1)
Quarter: 2025Q4

REPORT INFORMATION
  Report Type: Spontaneous
  Country: US (occurrence: US)
  Receive Date: 20251230
  Receipt Date: 20251230
  Transmission Date: 20260117
  Serious: Yes (Other)
  Sender: Pyros Pharmaceuticals
  Company Number: US-PYROS PHARMACEUTICALS, INC-20251001288

PATIENT

DRUGS (3)
  1. VIGAFYDE [Suspect]
     Active Substance: VIGABATRIN
     Indication: Infantile spasms
     Dosage: 500 MG, BID (5 ML)
     Route: 048
     Dates: start: 20250520, end: 2025
  2. VIGAFYDE [Suspect]
     Active Substance: VIGABATRIN
     Dosage: 800 MG, BID (8 ML)
     Route: 048
     Dates: start: 2025
  3. VIGAFYDE [Suspect]
     Active Substance: VIGABATRIN
     Dosage: 1000 MG, BID (10 ML)
     Route: 048
     Dates: start: 20250520

REACTIONS (1)
  - Seizure [Not Recovered/Not Resolved]

NARRATIVE: CASE EVENT DATE: 20250101
